FAERS Safety Report 4752298-8 (Version None)
Quarter: 2005Q3

REPORT INFORMATION
  Report Type: 
  Country: None (occurrence: None)
  Receive Date: 20050825
  Receipt Date: 20050804
  Transmission Date: 20060218
  Serious: Yes (Other)
  Sender: FDA-Public Use
  Company Number: US-GLAXOSMITHKLINE-A0569042A

PATIENT
  Age: 47 Year
  Sex: Male
  Weight: 53.2 kg

DRUGS (1)
  1. REQUIP [Suspect]
     Indication: RESTLESS LEGS SYNDROME
     Route: 048
     Dates: start: 20050705, end: 20050710

REACTIONS (1)
  - DRUG DEPENDENCE [None]
